FAERS Safety Report 7575226-9 (Version None)
Quarter: 2011Q2

REPORT INFORMATION
  Report Type: 
  Country: None (occurrence: None)
  Receive Date: 20110627
  Receipt Date: 20110512
  Transmission Date: 20111010
  Serious: Yes (Other)
  Sender: FDA-Public Use
  Company Number: US-B.I. PHARMACEUTICALS,INC./RIDGEFIELD-2011-BP-16227YA

PATIENT
  Age: 73 Year
  Sex: Male

DRUGS (2)
  1. TAMSULOSIN HCL [Suspect]
     Indication: PROSTATOMEGALY
  2. SAW PALMETTO (SERENOA REPENS) [Concomitant]

REACTIONS (1)
  - FLOPPY IRIS SYNDROME [None]
